FAERS Safety Report 25381986 (Version 1)
Quarter: 2025Q2

REPORT INFORMATION
  Report Type: Report from Study
  Country: GB (occurrence: GB)
  Receive Date: 20250531
  Receipt Date: 20250531
  Transmission Date: 20250717
  Serious: Yes (Other)
  Sender: CELLTRION
  Company Number: GB-CELLTRION INC.-2025GB016486

PATIENT

DRUGS (1)
  1. ADALIMUMAB-AATY [Suspect]
     Active Substance: ADALIMUMAB-AATY
     Indication: Rheumatoid arthritis
     Dosage: 40 MG, EVERY TWO WEEKS
     Route: 058
     Dates: start: 202401

REACTIONS (2)
  - Throat cancer [Unknown]
  - Intentional dose omission [Unknown]
